FAERS Safety Report 24433154 (Version 2)
Quarter: 2024Q4

REPORT INFORMATION
  Report Type: Spontaneous
  Country: US (occurrence: US)
  Receive Date: 20241014
  Receipt Date: 20241108
  Transmission Date: 20250115
  Serious: No
  Sender: ROCHE
  Company Number: US-ROCHE-10000103119

PATIENT
  Age: 74 Year
  Sex: Female

DRUGS (2)
  1. XOLAIR PFS [Suspect]
     Active Substance: OMALIZUMAB
     Indication: Urticaria
     Dosage: STRENGTH: 150 MG/ML?ONGOING
     Route: 058
     Dates: start: 202303
  2. XOLAIR PFS [Suspect]
     Active Substance: OMALIZUMAB

REACTIONS (4)
  - Flushing [Unknown]
  - Pruritus [Unknown]
  - Injection site reaction [Unknown]
  - Lyme disease [Unknown]

NARRATIVE: CASE EVENT DATE: 20241007
